FAERS Safety Report 19302745 (Version 3)
Quarter: 2022Q2

REPORT INFORMATION
  Report Type: Spontaneous
  Country: BE (occurrence: BE)
  Receive Date: 20210525
  Receipt Date: 20220407
  Transmission Date: 20220721
  Serious: Yes (Life-Threatening, Hospitalization, Other)
  Sender: FDA-Public Use
  Company Number: BE-TEVA-2021-BE-1909972

PATIENT
  Age: 53 Year
  Sex: Female

DRUGS (7)
  1. DOXORUBICIN HYDROCHLORIDE [Suspect]
     Active Substance: DOXORUBICIN HYDROCHLORIDE
     Indication: B-cell lymphoma stage III
     Dosage: R-ACVBP REGIMEN
     Route: 065
     Dates: end: 200703
  2. RITUXIMAB [Suspect]
     Active Substance: RITUXIMAB
     Indication: B-cell lymphoma stage III
     Dosage: R-ACVBP REGIMEN
     Route: 065
     Dates: end: 200703
  3. PREDNISONE [Suspect]
     Active Substance: PREDNISONE
     Indication: B-cell lymphoma stage III
     Dosage: R-ACVBP REGIMEN
     Route: 065
     Dates: end: 200703
  4. BLEOMYCIN [Suspect]
     Active Substance: BLEOMYCIN SULFATE
     Indication: B-cell lymphoma stage III
     Dosage: R-ACVBP REGIMEN
     Route: 065
     Dates: end: 200703
  5. VINDESINE [Suspect]
     Active Substance: VINDESINE
     Indication: B-cell lymphoma stage III
     Dosage: R-ACVBP REGIMEN
     Route: 065
     Dates: end: 200703
  6. CYCLOPHOSPHAMIDE [Suspect]
     Active Substance: CYCLOPHOSPHAMIDE
     Indication: B-cell lymphoma stage III
     Dosage: R-ACVBP REGIMEN
     Route: 065
     Dates: end: 200703
  7. LAMIVUDINE [Suspect]
     Active Substance: LAMIVUDINE
     Indication: Hepatitis B reactivation
     Dosage: UNK
     Route: 065

REACTIONS (3)
  - Hepatic encephalopathy [Recovered/Resolved]
  - Hepatitis B reactivation [Recovered/Resolved]
  - Hepatic failure [Recovered/Resolved]

NARRATIVE: CASE EVENT DATE: 20071101
